FAERS Safety Report 5335862-7 (Version None)
Quarter: 2007Q2

REPORT INFORMATION
  Report Type: 
  Country: None (occurrence: None)
  Receive Date: 20070301
  Receipt Date: 20060915
  Transmission Date: 20071010
  Serious: No
  Sender: FDA-Public Use
  Company Number: 229964

PATIENT
  Age: 12 Year
  Sex: Male
  Weight: 46.6 kg

DRUGS (3)
  1. NUTROPIN [Suspect]
     Indication: GROWTH HORMONE DEFICIENCY
     Dosage: 2.6 MG, 7/WEEK, SUBCUTANEOUS
     Route: 058
     Dates: start: 20050303
  2. ALUPENT (METAPROTERENOL SULFATE) [Concomitant]
  3. ZYRTEC [Concomitant]

REACTIONS (1)
  - EPIPHYSIOLYSIS [None]
